FAERS Safety Report 4532123-0 (Version None)
Quarter: 2004Q4

REPORT INFORMATION
  Report Type: 
  Country: None (occurrence: None)
  Receive Date: 20041217
  Receipt Date: 20041206
  Transmission Date: 20050328
  Serious: No
  Sender: FDA-Public Use
  Company Number: 2004AP06250

PATIENT
  Age: 33 Year
  Sex: Male

DRUGS (1)
  1. MEROPEN [Suspect]
     Dates: start: 20040330

REACTIONS (2)
  - CHOLESTASIS [None]
  - HEPATOCELLULAR DAMAGE [None]
